FAERS Safety Report 18556006 (Version 1)
Quarter: 2020Q4

REPORT INFORMATION
  Report Type: Spontaneous
  Country: US (occurrence: US)
  Receive Date: 20201127
  Receipt Date: 20201127
  Transmission Date: 20210114
  Serious: No
  Sender: FDA-Public Use
  Company Number: US-PERRIGO-20US005101

PATIENT

DRUGS (2)
  1. NICOTINE POLACRILEX [Suspect]
     Active Substance: NICOTINE
     Dosage: 1/2 LOZENGE, SINGLE
     Route: 002
     Dates: start: 202003, end: 202003
  2. NICOTINE POLACRILEX [Suspect]
     Active Substance: NICOTINE
     Indication: NICOTINE DEPENDENCE
     Dosage: 4 MG, SINGLE
     Route: 002
     Dates: start: 202003, end: 202003

REACTIONS (4)
  - Throat irritation [Unknown]
  - Wrong technique in product usage process [Unknown]
  - Underdose [Unknown]
  - Nausea [Unknown]

NARRATIVE: CASE EVENT DATE: 202003
